FAERS Safety Report 6828782-X (Version None)
Quarter: 2010Q3

REPORT INFORMATION
  Report Type: 
  Country: None (occurrence: None)
  Receive Date: 20100709
  Receipt Date: 20070220
  Transmission Date: 20110219
  Serious: No
  Sender: FDA-Public Use
  Company Number: US-PFIZER INC-2007014992

PATIENT
  Sex: Female
  Weight: 92.99 kg

DRUGS (7)
  1. CHANTIX [Suspect]
     Indication: SMOKING CESSATION THERAPY
     Dates: start: 20070208
  2. VERAPAMIL [Concomitant]
  3. LIPITOR [Concomitant]
  4. ALBUTEROL [Concomitant]
  5. EXCEDRIN (MIGRAINE) [Concomitant]
  6. VITAMIN E [Concomitant]
  7. MONTELUKAST SODIUM [Concomitant]

REACTIONS (2)
  - CONSTIPATION [None]
  - NAUSEA [None]
